FAERS Safety Report 7268674-8 (Version None)
Quarter: 2011Q1

REPORT INFORMATION
  Report Type: 
  Country: None (occurrence: None)
  Receive Date: 20110124
  Receipt Date: 20110106
  Transmission Date: 20110831
  Serious: Yes (Life-Threatening, Hospitalization, Disabling)
  Sender: FDA-Public Use
  Company Number: 2010P1002150

PATIENT
  Age: 60 Year
  Sex: Male
  Weight: 80.7403 kg

DRUGS (7)
  1. CARBAMAZEPINE [Suspect]
     Indication: ANXIETY DISORDER
     Dosage: 200 MG;QD;PO, 200 MG;TID;PO
     Route: 048
     Dates: start: 20091211, end: 20091218
  2. CARBAMAZEPINE [Suspect]
     Indication: ANXIETY DISORDER
     Dosage: 200 MG;QD;PO, 200 MG;TID;PO
     Route: 048
     Dates: start: 20091201, end: 20091211
  3. TRAZODONE HCL [Concomitant]
  4. PROZAC [Concomitant]
  5. OMEPRAZOLE [Concomitant]
  6. IMITREX [Concomitant]
  7. LISINOPRIL [Concomitant]

REACTIONS (8)
  - RASH PAPULAR [None]
  - STEVENS-JOHNSON SYNDROME [None]
  - ACTIVITIES OF DAILY LIVING IMPAIRED [None]
  - DERMATITIS CONTACT [None]
  - MENTAL DISORDER [None]
  - RASH PRURITIC [None]
  - URTICARIA [None]
  - COLONIC POLYP [None]
